FAERS Safety Report 12926262 (Version 1)
Quarter: 2016Q4

REPORT INFORMATION
  Report Type: Spontaneous
  Country: CA (occurrence: CA)
  Receive Date: 20161109
  Receipt Date: 20161109
  Transmission Date: 20170207
  Serious: Yes (Other)
  Sender: FDA-Public Use
  Company Number: CA-CANTON LABORATORIES, LLC-1059378

PATIENT
  Sex: Female

DRUGS (11)
  1. NAPROSYN [Suspect]
     Active Substance: NAPROXEN
     Indication: PAIN
     Route: 048
  2. TYLENOL WITH CODEINE [Suspect]
     Active Substance: ACETAMINOPHEN\CODEINE PHOSPHATE
  3. IMOVANE [Concomitant]
     Active Substance: ZOPICLONE
     Route: 048
  4. INDOMETHACIN. [Concomitant]
     Active Substance: INDOMETHACIN
  5. ESCITALOPRAM [Concomitant]
     Active Substance: ESCITALOPRAM OXALATE
  6. IRBESARTAN. [Concomitant]
     Active Substance: IRBESARTAN
  7. XELJANZ [Concomitant]
     Active Substance: TOFACITINIB CITRATE
     Route: 048
  8. ENBREL [Concomitant]
     Active Substance: ETANERCEPT
  9. SULFASALAZINE. [Concomitant]
     Active Substance: SULFASALAZINE
  10. METHOTREXATE SODIUM. [Concomitant]
     Active Substance: METHOTREXATE SODIUM
  11. ATORVASTATIN CALCIUM. [Concomitant]
     Active Substance: ATORVASTATIN CALCIUM
     Route: 048

REACTIONS (3)
  - Feeling abnormal [Unknown]
  - Activities of daily living impaired [Unknown]
  - Somnolence [Unknown]
